FAERS Safety Report 10355948 (Version 1)
Quarter: 2014Q3

REPORT INFORMATION
  Report Type: Spontaneous
  Country: US (occurrence: US)
  Receive Date: 20140801
  Receipt Date: 20140801
  Transmission Date: 20150326
  Serious: Yes (Other)
  Sender: FDA-Public Use
  Company Number: US-AMGEN-USASP2014056929

PATIENT
  Age: 62 Year
  Sex: Female

DRUGS (4)
  1. ENBREL [Suspect]
     Active Substance: ETANERCEPT
     Indication: RHEUMATOID ARTHRITIS
     Dosage: UNK
     Route: 065
     Dates: end: 2014
  2. PLAQUENIL [Concomitant]
     Active Substance: HYDROXYCHLOROQUINE SULFATE
  3. CELEBREX [Concomitant]
     Active Substance: CELECOXIB
  4. PREDNISONE. [Concomitant]
     Active Substance: PREDNISONE

REACTIONS (9)
  - Waldenstrom^s macroglobulinaemia [Unknown]
  - Rheumatoid arthritis [Not Recovered/Not Resolved]
  - Lung infiltration [Unknown]
  - Latent tuberculosis [Unknown]
  - Drug effect incomplete [Unknown]
  - Toe amputation [Unknown]
  - Cardiac murmur [Unknown]
  - Pain [Unknown]
  - Hip arthroplasty [Unknown]
